FAERS Safety Report 8578840-7 (Version None)
Quarter: 2012Q3

REPORT INFORMATION
  Report Type: 
  Country: None (occurrence: None)
  Receive Date: 20120808
  Receipt Date: 20120803
  Transmission Date: 20120928
  Serious: Yes (Other)
  Sender: FDA-Public Use
  Company Number: PHEH2012US015357

PATIENT
  Sex: Male

DRUGS (1)
  1. GILENYA [Suspect]
     Indication: MULTIPLE SCLEROSIS
     Dosage: 0.5 MG, QD
     Route: 048
     Dates: start: 20120718, end: 20120803

REACTIONS (6)
  - HEART RATE INCREASED [None]
  - BRADYCARDIA [None]
  - DYSPNOEA [None]
  - DIZZINESS [None]
  - VENTRICULAR EXTRASYSTOLES [None]
  - PALPITATIONS [None]
